FAERS Safety Report 10098809 (Version 3)
Quarter: 2014Q2

REPORT INFORMATION
  Report Type: Report from Study
  Country: IT (occurrence: IT)
  Receive Date: 20140423
  Receipt Date: 20140509
  Transmission Date: 20141212
  Serious: Yes (Hospitalization)
  Sender: FDA-Public Use
  Company Number: IT-INCYTE CORPORATION-2014IN000639

PATIENT
  Age: 65 Year
  Sex: Female
  Weight: 58 kg

DRUGS (4)
  1. INC424 [Suspect]
     Indication: MYELOFIBROSIS
     Dosage: 5 MG, BID
     Route: 048
     Dates: start: 20140326
  2. LAMIVUDINE [Concomitant]
     Indication: HEPATITIS B ANTIBODY POSITIVE
     Dosage: 100 MG, UNK
     Route: 048
     Dates: start: 20130704
  3. DANAZOL [Concomitant]
     Indication: THROMBOCYTOPENIA
     Dosage: 50 MG, BID
     Dates: start: 20121217, end: 20140303
  4. ALLOPURINOL [Concomitant]
     Indication: PROPHYLAXIS
     Dosage: 300 MG, UNK
     Route: 048
     Dates: start: 20130129

REACTIONS (6)
  - Ascites [Recovered/Resolved]
  - Diabetes mellitus [Recovered/Resolved]
  - Pleural effusion [Recovered/Resolved]
  - Pulmonary hypertension [Recovered/Resolved]
  - Respiratory failure [Recovered/Resolved]
  - Right ventricular failure [Recovered/Resolved]
